FAERS Safety Report 18742365 (Version 2)
Quarter: 2021Q1

REPORT INFORMATION
  Report Type: Spontaneous
  Country: AU (occurrence: AU)
  Receive Date: 20210114
  Receipt Date: 20210223
  Transmission Date: 20210419
  Serious: Yes (Other)
  Sender: FDA-Public Use
  Company Number: AU-BAUSCH-BL-2021-000176

PATIENT
  Age: 57 Year
  Sex: Male

DRUGS (3)
  1. PREDNISOLONE. [Suspect]
     Active Substance: PREDNISOLONE
     Indication: PRODUCT USED FOR UNKNOWN INDICATION
     Route: 065
  2. CICLOSPORIN [Suspect]
     Active Substance: CYCLOSPORINE
     Indication: PRODUCT USED FOR UNKNOWN INDICATION
     Route: 065
  3. THYMOGLOBULINE [Suspect]
     Active Substance: LAPINE T-LYMPHOCYTE IMMUNE GLOBULIN
     Indication: PRODUCT USED FOR UNKNOWN INDICATION
     Route: 065

REACTIONS (9)
  - Abdominal pain [Unknown]
  - Gastrointestinal haemorrhage [Unknown]
  - Post transplant lymphoproliferative disorder [Unknown]
  - Epstein-Barr virus infection [Unknown]
  - B-cell lymphoma [Unknown]
  - Intestinal perforation [Unknown]
  - Melaena [Unknown]
  - Intestinal ulcer [Unknown]
  - Rectal haemorrhage [Unknown]
